FAERS Safety Report 5447273-4 (Version None)
Quarter: 2007Q3

REPORT INFORMATION
  Report Type: 
  Country: None (occurrence: None)
  Receive Date: 20070910
  Receipt Date: 20070830
  Transmission Date: 20080115
  Serious: Yes (Hospitalization)
  Sender: FDA-Public Use
  Company Number: JP-NOVOPROD-267032

PATIENT
  Age: 70 Year
  Sex: Female
  Weight: 65 kg

DRUGS (7)
  1. NOVORAPID CHU FLEXPEN [Suspect]
     Indication: DRUG USE FOR UNKNOWN INDICATION
     Dosage: 12 IU, QD
     Route: 058
     Dates: start: 20070725
  2. NOVOLIN N [Suspect]
     Indication: DRUG USE FOR UNKNOWN INDICATION
     Dosage: 4 IU, QD
     Route: 058
     Dates: start: 20070725
  3. NOVOLIN R [Suspect]
     Indication: DRUG USE FOR UNKNOWN INDICATION
     Dosage: 4 IU, QD
     Route: 058
     Dates: start: 20070726, end: 20070726
  4. HUMALOG [Concomitant]
     Dosage: 12 IU, QD
     Route: 058
     Dates: start: 20070724, end: 20070725
  5. HUMACART N [Concomitant]
     Dosage: 4 IU, QD
     Route: 058
     Dates: start: 20070724, end: 20070725
  6. NORVASC [Concomitant]
     Indication: HYPERTENSION
     Dosage: 5 MG, QD
     Route: 048
     Dates: start: 20070810, end: 20070813
  7. PREDNISOLONE [Concomitant]
     Dosage: 2.5 MG, QD
     Route: 048

REACTIONS (4)
  - BLOOD GLUCOSE FLUCTUATION [None]
  - ECZEMA [None]
  - PRURITUS GENERALISED [None]
  - RASH [None]
